FAERS Safety Report 23821440 (Version 2)
Quarter: 2024Q2

REPORT INFORMATION
  Report Type: Spontaneous
  Country: CZ (occurrence: CZ)
  Receive Date: 20240506
  Receipt Date: 20240530
  Transmission Date: 20240715
  Serious: Yes (Life-Threatening, Other)
  Sender: FDA-Public Use
  Company Number: None

PATIENT
  Age: 69 Year
  Sex: Female
  Weight: 115 kg

DRUGS (16)
  1. ACETAMINOPHEN [Suspect]
     Active Substance: ACETAMINOPHEN
     Indication: Pain
     Dosage: ON APRIL 8TH, ONCE A DAY, ON APRIL 9TH 4 TIMES A DAY (EVERY 6 HOURS), ON APRIL 10TH ONCE A DAY
     Route: 042
     Dates: start: 20240408, end: 20240410
  2. ZALDIAR [Suspect]
     Active Substance: ACETAMINOPHEN\TRAMADOL HYDROCHLORIDE
     Indication: Pain
     Dosage: APRIL 14TH, TOTAL 4 TABLETS,  APRIL 15TH, ONE TABLET (37,5/325 MG).?FORM: TABLET (UNCOATED, ORAL)?RO
     Dates: start: 20240414, end: 20240415
  3. ACETAMINOPHEN\IBUPROFEN [Suspect]
     Active Substance: ACETAMINOPHEN\IBUPROFEN
     Indication: Pain
     Dosage: 3 TIMES A DAY (0-1-1-1N)?ROUTE: ORAL ?FORM: TABLET (UNCOATED; ORAL)
     Dates: start: 20240410, end: 20240415
  4. ENOXAPARIN SODIUM [Concomitant]
     Active Substance: ENOXAPARIN SODIUM
     Indication: Prophylaxis
     Dosage: 0,2 ML EVERY 24H?FORM: SOLUTION FOR INJECTION?ROUTE: SUBCUTANEOUS USE
     Dates: start: 20240408
  5. NEBIVOLOL [Concomitant]
     Active Substance: NEBIVOLOL
     Indication: Hypertension
     Dosage: 1/2-0-0?ROUTE: ORAL ?FORM: TABLET (UNCOATED, ORAL)
     Dates: start: 20240408
  6. ARCHIFAR [Concomitant]
     Indication: Cellulitis
     Dosage: FORM: SOLUTION FOR INJECTION ?ROUTE: INTRAVENOUS
     Dates: start: 20240408
  7. PREGABALIN [Concomitant]
     Active Substance: PREGABALIN
     Indication: Pain
     Dosage: 1-0-0?FORM: TABLET (UNCOATED, ORAL)?ROUTE: ORAL USE
     Dates: start: 20240408
  8. TRAMADOL [Concomitant]
     Active Substance: TRAMADOL\TRAMADOL HYDROCHLORIDE
     Indication: Pain
     Dosage: FORM: SOLUTION FOR INJECTION ?ROUTE: INTRAVENOUS
     Dates: start: 20240408
  9. Nutrison HFE [Concomitant]
     Indication: Product used for unknown indication
  10. OXAZEPAM [Concomitant]
     Active Substance: OXAZEPAM
     Indication: Hypnotherapy
     Dosage: 1 TIME IN THE EVENING?FORM: TABLET ?ROUTE: UNKNOWN
     Dates: start: 20240414
  11. ELECTROLYTES NOS [Concomitant]
     Active Substance: ELECTROLYTES NOS
     Indication: Fluid replacement
     Dosage: ONCE EVERY 24 HOURS?FORM: INTRAVENOUS INFUSION?ROUTE: INTRAVENOUS
     Dates: start: 20240408
  12. LAMICTAL [Concomitant]
     Active Substance: LAMOTRIGINE
     Indication: Epilepsy
     Dosage: 1-0-1?FORM: TABLET?ROUTE: ORAL
     Dates: start: 20240408
  13. MIRTAZAPINE [Concomitant]
     Active Substance: MIRTAZAPINE
     Indication: Hypnotherapy
     Dosage: 1 TIME FOR THE NIGHT?FORM: TABLET ?ROUTE: ORAL
     Dates: start: 20240408
  14. PANTOPRAZOLE SODIUM [Concomitant]
     Active Substance: PANTOPRAZOLE SODIUM
     Indication: Gastrointestinal disorder
     Dosage: FORM: SOLUTION FOR INJECTION?ROUTE: INTRAVENOUS
     Dates: start: 20240408
  15. FENTANYL [Concomitant]
     Active Substance: FENTANYL\FENTANYL CITRATE
     Indication: Pain
     Dosage: FORM: CUTANEOUS PATCH?ROUTE: CUTANEOUS USE
     Dates: start: 20240408
  16. MORPHINE [Concomitant]
     Active Substance: MORPHINE
     Indication: Pain
     Dosage: 1/2 AMPULE IN THE EVENING?ROUTE: INTRAVENOUS
     Dates: start: 20240409

REACTIONS (1)
  - Metabolic acidosis [Recovering/Resolving]

NARRATIVE: CASE EVENT DATE: 20240415
